FAERS Safety Report 9659465 (Version 1)
Quarter: 2013Q4

REPORT INFORMATION
  Report Type: Spontaneous
  Country: GB (occurrence: GB)
  Receive Date: 20131031
  Receipt Date: 20131031
  Transmission Date: 20140711
  Serious: Yes (Hospitalization, Disabling)
  Sender: FDA-Public Use
  Company Number: PHFR2013GB006119

PATIENT
  Age: 7 Year
  Sex: Male
  Weight: 22.5 kg

DRUGS (1)
  1. RITALIN [Suspect]
     Dosage: 10 MG, BID
     Route: 048
     Dates: start: 20130801, end: 20131016

REACTIONS (4)
  - Dystonia [Recovering/Resolving]
  - Gait disturbance [Unknown]
  - Syncope [Unknown]
  - Dyskinesia [Unknown]
